FAERS Safety Report 10974056 (Version 2)
Quarter: 2015Q2

REPORT INFORMATION
  Report Type: Spontaneous
  Country: US (occurrence: US)
  Receive Date: 20150401
  Receipt Date: 20150623
  Transmission Date: 20150821
  Serious: Yes (Other)
  Sender: FDA-Public Use
  Company Number: US-ASTRAZENECA-2014SE56425

PATIENT
  Age: 803 Month
  Sex: Female
  Weight: 71.2 kg

DRUGS (47)
  1. REQUIP/ ROPINIROLE HCL [Concomitant]
     Route: 048
     Dates: start: 20050729
  2. HYDROCODONE [Concomitant]
     Active Substance: HYDROCODONE
     Dates: start: 20090213
  3. ALLEGRA-D [Concomitant]
     Active Substance: FEXOFENADINE\PSEUDOEPHEDRINE
     Route: 048
     Dates: start: 20040928
  4. ONDANSETRON HCL/ ZOFRAN [Concomitant]
     Route: 048
     Dates: start: 20110909
  5. ZITHROMAX [Concomitant]
     Active Substance: AZITHROMYCIN DIHYDRATE
     Route: 048
     Dates: start: 20031009
  6. REQUIP/ ROPINIROLE HCL [Concomitant]
     Route: 048
     Dates: start: 20100901
  7. CREON [Concomitant]
     Active Substance: PANCRELIPASE AMYLASE\PANCRELIPASE LIPASE\PANCRELIPASE PROTEASE
     Dosage: 2 CAPS THREE TIMES DAILY
     Route: 048
     Dates: start: 20100921
  8. XANAX [Concomitant]
     Active Substance: ALPRAZOLAM
     Route: 048
     Dates: start: 20100922
  9. LEVAQUIN [Concomitant]
     Active Substance: LEVOFLOXACIN
     Route: 048
     Dates: start: 20101219
  10. WELLBUTRIN XL [Concomitant]
     Active Substance: BUPROPION HYDROCHLORIDE
     Route: 048
     Dates: start: 20060512
  11. TRAMADOL HCL [Concomitant]
     Active Substance: TRAMADOL HYDROCHLORIDE
     Route: 048
     Dates: start: 20130411
  12. ZOCOR [Concomitant]
     Active Substance: SIMVASTATIN
     Route: 048
     Dates: start: 20020107
  13. VICTOZA [Suspect]
     Active Substance: LIRAGLUTIDE
     Indication: TYPE 2 DIABETES MELLITUS
     Route: 065
     Dates: start: 20100407, end: 20100921
  14. VICTOZA [Suspect]
     Active Substance: LIRAGLUTIDE
     Indication: TYPE 2 DIABETES MELLITUS
     Dosage: 18MG/3ML  0.6 MG DAILY
     Route: 058
     Dates: start: 20100901
  15. NEXIUM [Concomitant]
     Active Substance: ESOMEPRAZOLE MAGNESIUM
     Route: 048
     Dates: start: 20031002
  16. BYETTA [Suspect]
     Active Substance: EXENATIDE
     Indication: TYPE 2 DIABETES MELLITUS
     Route: 065
     Dates: start: 20090829
  17. BYETTA [Suspect]
     Active Substance: EXENATIDE
     Indication: TYPE 2 DIABETES MELLITUS
     Route: 065
     Dates: start: 20101015
  18. FORTAMET SR [Concomitant]
     Indication: ABDOMINAL PAIN
     Route: 048
     Dates: start: 20100901
  19. PREMARIN [Concomitant]
     Active Substance: ESTROGENS, CONJUGATED
     Route: 048
     Dates: start: 20050210
  20. ZETIA [Concomitant]
     Active Substance: EZETIMIBE
     Route: 048
     Dates: start: 20041001
  21. PHENTERMINE [Concomitant]
     Active Substance: PHENTERMINE
     Route: 048
     Dates: start: 20070823
  22. GLIPIZIDE. [Concomitant]
     Active Substance: GLIPIZIDE
     Route: 048
     Dates: start: 20090521
  23. BYETTA [Suspect]
     Active Substance: EXENATIDE
     Indication: TYPE 2 DIABETES MELLITUS
     Route: 065
     Dates: start: 20090827, end: 20100407
  24. NASONEX [Concomitant]
     Active Substance: MOMETASONE FUROATE
     Route: 045
     Dates: start: 20050203
  25. ACTONEL [Concomitant]
     Active Substance: RISEDRONATE SODIUM
     Route: 048
     Dates: start: 20050127
  26. LISINOPRIL. [Concomitant]
     Active Substance: LISINOPRIL
     Route: 048
     Dates: start: 20090407
  27. GABAPENTIN. [Concomitant]
     Active Substance: GABAPENTIN
     Route: 048
     Dates: start: 20050127
  28. MICARDIS [Concomitant]
     Active Substance: TELMISARTAN
     Route: 048
     Dates: start: 20090820
  29. FORTAMET SR [Concomitant]
     Indication: DIARRHOEA
     Route: 048
     Dates: start: 20100901
  30. PIROXICAM. [Concomitant]
     Active Substance: PIROXICAM
     Route: 048
     Dates: start: 20050203
  31. NYSTATIN. [Concomitant]
     Active Substance: NYSTATIN
     Dates: start: 20040511
  32. CELEBREX [Concomitant]
     Active Substance: CELECOXIB
     Route: 048
     Dates: start: 20020610
  33. ALDACTONE [Concomitant]
     Active Substance: SPIRONOLACTONE
     Route: 048
     Dates: start: 20150323
  34. GABAPENTIN. [Concomitant]
     Active Substance: GABAPENTIN
     Dosage: 800 MG 1/2 TAB QHS
     Route: 048
     Dates: start: 20100901
  35. PRILOSEC [Concomitant]
     Active Substance: OMEPRAZOLE MAGNESIUM
     Dosage: 1 TAB QD PRN
     Route: 048
     Dates: start: 20100901
  36. PROMETHAZINE [Concomitant]
     Active Substance: PROMETHAZINE\PROMETHAZINE HYDROCHLORIDE
     Route: 048
     Dates: start: 20090213
  37. FAMOTIDINE. [Concomitant]
     Active Substance: FAMOTIDINE
     Route: 048
     Dates: start: 20050203
  38. CYMBALTA [Concomitant]
     Active Substance: DULOXETINE HYDROCHLORIDE
     Route: 048
     Dates: start: 20050210
  39. ADVAIR HFA [Concomitant]
     Active Substance: FLUTICASONE PROPIONATE\SALMETEROL XINAFOATE
     Dates: start: 20081026
  40. CLONAZEPAM. [Concomitant]
     Active Substance: CLONAZEPAM
     Route: 048
     Dates: start: 20090716
  41. CARBIDOPA. [Concomitant]
     Active Substance: CARBIDOPA
     Dosage: 50/200
     Route: 048
     Dates: start: 20020530
  42. PAXIL [Concomitant]
     Active Substance: PAROXETINE HYDROCHLORIDE
     Route: 048
     Dates: start: 20010809
  43. FOLFOX [Concomitant]
     Active Substance: FLUOROURACIL\LEUCOVORIN CALCIUM\OXALIPLATIN
     Dates: start: 201304
  44. FLUTAB [Concomitant]
     Dates: start: 20081026
  45. PENICILLIN VK [Concomitant]
     Active Substance: PENICILLIN V POTASSIUM
     Route: 048
     Dates: start: 20090819
  46. CELEXA [Concomitant]
     Active Substance: CITALOPRAM HYDROBROMIDE
     Route: 048
     Dates: start: 20031002
  47. OXALIPLATIN. [Concomitant]
     Active Substance: OXALIPLATIN
     Dates: start: 201304

REACTIONS (9)
  - Hepatic steatosis [Unknown]
  - Pancreatic carcinoma metastatic [Unknown]
  - Skin cancer [Unknown]
  - Pancreatitis chronic [Unknown]
  - Pulmonary mass [Unknown]
  - Cyst [Unknown]
  - Metastases to ovary [Unknown]
  - Ascites [Unknown]
  - Metastases to peritoneum [Unknown]

NARRATIVE: CASE EVENT DATE: 201009
